FAERS Safety Report 19318664 (Version 1)
Quarter: 2021Q2

REPORT INFORMATION
  Report Type: Spontaneous
  Country: US (occurrence: US)
  Receive Date: 20210527
  Receipt Date: 20210527
  Transmission Date: 20210717
  Serious: Yes (Other)
  Sender: FDA-Public Use
  Company Number: None

PATIENT
  Age: 83 Year
  Sex: Male

DRUGS (15)
  1. CETIRIZINE [Concomitant]
     Active Substance: CETIRIZINE HYDROCHLORIDE
  2. VIATMIN D [Concomitant]
  3. AMLODIPIN [Concomitant]
     Active Substance: AMLODIPINE BESYLATE
  4. LECITHIN [Concomitant]
     Active Substance: LECITHIN
  5. POMEGRANATE [Concomitant]
     Active Substance: POMEGRANATE
  6. ORGOVYX [Suspect]
     Active Substance: RELUGOLIX
     Indication: PROSTATE CANCER
     Route: 048
     Dates: start: 20210424, end: 20210505
  7. EZETIMIBE. [Concomitant]
     Active Substance: EZETIMIBE
  8. LORAZEPAM. [Concomitant]
     Active Substance: LORAZEPAM
  9. MAGNESIUM [Concomitant]
     Active Substance: MAGNESIUM
  10. VITAMIN B12 [Concomitant]
     Active Substance: CYANOCOBALAMIN
  11. ASPIRIN. [Concomitant]
     Active Substance: ASPIRIN
  12. SAW PALMETTO [Concomitant]
     Active Substance: HERBALS\SAW PALMETTO
  13. TRAITERENE?HCTZ [Concomitant]
  14. COENZYME Q10 [Concomitant]
     Active Substance: DIETARY SUPPLEMENT\UBIDECARENONE
  15. OLMESARTAN [Concomitant]
     Active Substance: OLMESARTAN

REACTIONS (1)
  - Rash [None]

NARRATIVE: CASE EVENT DATE: 20210505
